FAERS Safety Report 4876761-4 (Version None)
Quarter: 2006Q1

REPORT INFORMATION
  Report Type: 
  Country: None (occurrence: None)
  Receive Date: 20060110
  Receipt Date: 20051005
  Transmission Date: 20060701
  Serious: Yes (Other)
  Sender: FDA-Public Use
  Company Number: US-MERCK-0510USA05318

PATIENT
  Age: 68 Year
  Sex: Female
  Weight: 71 kg

DRUGS (5)
  1. VIOXX [Suspect]
     Indication: ARTHRITIS
     Route: 048
     Dates: start: 20030901, end: 20040504
  2. MECLIZINE [Concomitant]
     Route: 065
  3. NORVASC [Concomitant]
     Route: 065
  4. ACCUPRIL [Concomitant]
     Route: 065
  5. XANAX [Concomitant]
     Route: 065

REACTIONS (3)
  - ASTHENIA [None]
  - CEREBROVASCULAR ACCIDENT [None]
  - HYPOAESTHESIA [None]
